FAERS Safety Report 4359348-1 (Version None)
Quarter: 2004Q2

REPORT INFORMATION
  Report Type: 
  Country: None (occurrence: None)
  Receive Date: 20040518
  Receipt Date: 20040511
  Transmission Date: 20050107
  Serious: Yes (Other)
  Sender: FDA-Public Use
  Company Number: US-BRISTOL-MYERS SQUIBB COMPANY-12584397

PATIENT
  Age: 29 Year
  Sex: Female
  Weight: 82 kg

DRUGS (1)
  1. GLUCOPHAGE [Suspect]
     Indication: POLYCYSTIC OVARIES
     Route: 048

REACTIONS (1)
  - GRAND MAL CONVULSION [None]
